FAERS Safety Report 24776775 (Version 1)
Quarter: 2024Q4

REPORT INFORMATION
  Report Type: Spontaneous
  Country: DE (occurrence: DE)
  Receive Date: 20241226
  Receipt Date: 20241226
  Transmission Date: 20250114
  Serious: Yes (Hospitalization)
  Sender: ACCORD
  Company Number: None

PATIENT
  Age: 67 Year
  Sex: Male
  Weight: 48 kg

DRUGS (3)
  1. FLUOROURACIL [Suspect]
     Active Substance: FLUOROURACIL
     Indication: Product used for unknown indication
  2. JONOSTERIL [Concomitant]
  3. FLUOROURACIL [Suspect]
     Active Substance: FLUOROURACIL
     Indication: Product used for unknown indication

REACTIONS (5)
  - General physical health deterioration [Recovered/Resolved]
  - Dyspnoea [Recovered/Resolved]
  - Pallor [Recovered/Resolved]
  - Disorientation [Recovered/Resolved]
  - Condition aggravated [Recovered/Resolved]

NARRATIVE: CASE EVENT DATE: 20241105
